FAERS Safety Report 11628739 (Version 1)
Quarter: 2015Q4

REPORT INFORMATION
  Report Type: Spontaneous
  Country: US (occurrence: None)
  Receive Date: 20151013
  Receipt Date: 20151013
  Transmission Date: 20160304
  Serious: Yes (Hospitalization, Disabling, Other)
  Sender: FDA-Public Use
  Company Number: None

PATIENT
  Age: 57 Year
  Sex: Male
  Weight: 74.84 kg

DRUGS (5)
  1. ANCEF [Suspect]
     Active Substance: CEFAZOLIN SODIUM
     Indication: POSTOPERATIVE WOUND INFECTION
     Dosage: 1 GRAM Q EIGHT HOURS X6 WEEKS 3 TIMES DAILY 8 HOURS INJECTION I.V.
     Route: 042
     Dates: start: 20040907, end: 20041022
  2. CALCIUM [Concomitant]
     Active Substance: CALCIUM
  3. WHEELCHAIR [Concomitant]
     Active Substance: DEVICE
  4. HOSPITAL BED [Concomitant]
  5. MULTI-VITAMIN [Concomitant]
     Active Substance: .ALPHA.-TOCOPHEROL ACETATE, DL-\ASCORBIC ACID\CYANOCOBALAMIN\FLUORIDE ION\FOLIC ACID\NIACIN\PYRIDOXINE\RIBOFLAVIN\THIAMINE\VITAMIN A\VITAMIN D

REACTIONS (1)
  - Staphylococcal infection [None]

NARRATIVE: CASE EVENT DATE: 20080907
